FAERS Safety Report 4485153-1 (Version None)
Quarter: 2004Q4

REPORT INFORMATION
  Report Type: 
  Country: None (occurrence: None)
  Receive Date: 20041026
  Receipt Date: 20031230
  Transmission Date: 20050328
  Serious: No
  Sender: FDA-Public Use
  Company Number: US-BRISTOL-MYERS SQUIBB COMPANY-12466785

PATIENT
  Age: 50 Year
  Sex: Female
  Weight: 70 kg

DRUGS (7)
  1. GLUCOPHAGE XR [Suspect]
     Indication: DIABETES MELLITUS
     Route: 048
  2. LANTUS [Concomitant]
  3. LIPITOR [Concomitant]
  4. NAPROXEN [Concomitant]
  5. SKELAXIN [Concomitant]
  6. TOPAMAX [Concomitant]
  7. ZESTRIL [Concomitant]

REACTIONS (1)
  - BLOOD GLUCOSE INCREASED [None]
